FAERS Safety Report 20901883 (Version 1)
Quarter: 2022Q2

REPORT INFORMATION
  Report Type: Spontaneous
  Country: US (occurrence: None)
  Receive Date: 20220601
  Receipt Date: 20220601
  Transmission Date: 20220721
  Serious: Yes (Other)
  Sender: FDA-Public Use
  Company Number: None

PATIENT
  Age: 68 Year
  Sex: Female
  Weight: 63 kg

DRUGS (16)
  1. REPATHA [Suspect]
     Active Substance: EVOLOCUMAB
     Indication: Blood cholesterol increased
     Dosage: OTHER QUANTITY : 1 INJECTION(S);?OTHER FREQUENCY : EVERY 2 WEEKS;?
     Route: 058
     Dates: start: 20220419, end: 20220503
  2. TECFIDERA [Concomitant]
  3. BACLOFEN [Concomitant]
     Active Substance: BACLOFEN
  4. DALFAMPRIDINE [Concomitant]
     Active Substance: DALFAMPRIDINE
  5. LYRICA [Concomitant]
  6. AMANTADINE HCL [Concomitant]
  7. CLONAZEPAM [Concomitant]
     Active Substance: CLONAZEPAM
  8. MULTIVITAMIN [Concomitant]
  9. VITAMIN E [Concomitant]
     Active Substance: .ALPHA.-TOCOPHEROL
  10. VITAMIN C [Concomitant]
     Active Substance: ASCORBIC ACID
  11. VITAMIN D3 [Concomitant]
     Active Substance: CHOLECALCIFEROL
  12. LECITHIN [Concomitant]
     Active Substance: LECITHIN
  13. RED YEAST RICE [Concomitant]
  14. COENZYME Q10 [Concomitant]
     Active Substance: DIETARY SUPPLEMENT\UBIDECARENONE
  15. CALCIUM [Concomitant]
  16. MAGNESIUM WITH ZINC [Concomitant]

REACTIONS (14)
  - Fatigue [None]
  - Dizziness [None]
  - Vertigo [None]
  - Vomiting [None]
  - Feeling hot [None]
  - Cold sweat [None]
  - Presyncope [None]
  - Head discomfort [None]
  - Photophobia [None]
  - Oversensing [None]
  - Muscular weakness [None]
  - Muscular weakness [None]
  - Hypersomnia [None]
  - Therapy cessation [None]

NARRATIVE: CASE EVENT DATE: 20220504
